FAERS Safety Report 14837826 (Version 1)
Quarter: 2018Q2

REPORT INFORMATION
  Report Type: Spontaneous
  Country: US (occurrence: US)
  Receive Date: 20180502
  Receipt Date: 20180502
  Transmission Date: 20180711
  Serious: Yes (Hospitalization, Other)
  Sender: FDA-Public Use
  Company Number: US-SAOL THERAPEUTICS-2018SAO00581

PATIENT
  Age: 47 Year
  Sex: Male
  Weight: 90.7 kg

DRUGS (6)
  1. LIORESAL [Suspect]
     Active Substance: BACLOFEN
     Indication: MUSCLE SPASTICITY
  2. SERTRALINE [Concomitant]
     Active Substance: SERTRALINE HYDROCHLORIDE
     Dosage: 100 MG, \DAY
  3. COMPOUNDED BACLOFEN [Suspect]
     Active Substance: BACLOFEN
     Indication: MUSCLE SPASMS
     Dosage: 11.28 ?G, \DAY
     Route: 037
     Dates: start: 20130228
  4. LIORESAL [Suspect]
     Active Substance: BACLOFEN
     Indication: MUSCLE SPASTICITY
     Dosage: UNK
     Route: 037
  5. OMEPRAZOLE. [Concomitant]
     Active Substance: OMEPRAZOLE
     Dosage: 40 MG, \DAY
     Route: 048
  6. RANITIDINE. [Concomitant]
     Active Substance: RANITIDINE
     Dosage: 150 MG, \DAY

REACTIONS (11)
  - Asthenia [Recovering/Resolving]
  - Vomiting [Recovering/Resolving]
  - Device infusion issue [Unknown]
  - Overdose [Unknown]
  - Constipation [Unknown]
  - Nausea [Recovering/Resolving]
  - Urinary tract infection [Unknown]
  - Bradycardia [Unknown]
  - Confusional state [Recovering/Resolving]
  - Urinary retention [Unknown]
  - Lethargy [Unknown]

NARRATIVE: CASE EVENT DATE: 20180407
